FAERS Safety Report 16230596 (Version 1)
Quarter: 2019Q2

REPORT INFORMATION
  Report Type: Other
  Country: US (occurrence: US)
  Receive Date: 20190423
  Receipt Date: 20190423
  Transmission Date: 20190711
  Serious: Yes (Other)
  Sender: FDA-Public Use
  Company Number: US-BIOVITRUM-2019US0825

PATIENT
  Sex: Female

DRUGS (3)
  1. KINERET [Suspect]
     Active Substance: ANAKINRA
     Route: 058
     Dates: end: 20190416
  2. TYLENOL [Concomitant]
     Active Substance: ACETAMINOPHEN
  3. LOW DOSE STEROID [Concomitant]

REACTIONS (5)
  - Swelling [Unknown]
  - Pain of skin [Unknown]
  - Haematochezia [Unknown]
  - Urticaria [Unknown]
  - Arthralgia [Unknown]
